FAERS Safety Report 22314447 (Version 1)
Quarter: 2023Q2

REPORT INFORMATION
  Report Type: Report from Study
  Country: US (occurrence: US)
  Receive Date: 20230512
  Receipt Date: 20230512
  Transmission Date: 20230721
  Serious: Yes (Other)
  Sender: FDA-Public Use
  Company Number: US-BAYER-2023A060206

PATIENT
  Sex: Female

DRUGS (5)
  1. ASPIRIN [Suspect]
     Active Substance: ASPIRIN
     Indication: Organ transplant
     Dosage: UNK
  2. ENVARSUS XR [Suspect]
     Active Substance: TACROLIMUS
  3. PROGRAF [Suspect]
     Active Substance: TACROLIMUS
  4. PREDNISONE [Suspect]
     Active Substance: PREDNISONE
  5. AZATHIOPRINE [Suspect]
     Active Substance: AZATHIOPRINE

REACTIONS (4)
  - Acute kidney injury [None]
  - Off label use [None]
  - Maternal exposure during pregnancy [None]
  - Contraindicated product administered [None]
